FAERS Safety Report 6962192-X (Version None)
Quarter: 2010Q3

REPORT INFORMATION
  Report Type: 
  Country: None (occurrence: None)
  Receive Date: 20100902
  Receipt Date: 20100820
  Transmission Date: 20110219
  Serious: Yes (Hospitalization)
  Sender: FDA-Public Use
  Company Number: FR-JNJFOC-20100900211

PATIENT
  Sex: Male

DRUGS (6)
  1. ZALDIAR [Suspect]
     Indication: PRODUCT USED FOR UNKNOWN INDICATION
     Dosage: 3 OR 4 TABLETS DAILY, AS NEEDED
     Route: 048
  2. LASIX [Concomitant]
     Route: 048
  3. PLAVIX [Concomitant]
     Route: 048
  4. MOLSIDOMINE [Concomitant]
     Route: 048
  5. OMEPRAZOLE [Concomitant]
     Route: 048
  6. KARDEGIC [Concomitant]
     Route: 048

REACTIONS (5)
  - INCORRECT DOSE ADMINISTERED [None]
  - LOSS OF CONSCIOUSNESS [None]
  - MALAISE [None]
  - MIOSIS [None]
  - OXYGEN SATURATION DECREASED [None]
